FAERS Safety Report 11523374 (Version 1)
Quarter: 2015Q3

REPORT INFORMATION
  Report Type: Spontaneous
  Country: US (occurrence: US)
  Receive Date: 20150903
  Receipt Date: 20150903
  Transmission Date: 20151125
  Serious: No
  Sender: FDA-Public Use
  Company Number: US-ELI_LILLY_AND_COMPANY-US201302002762

PATIENT
  Age: 56 Year
  Sex: Female

DRUGS (5)
  1. CYMBALTA [Suspect]
     Active Substance: DULOXETINE HYDROCHLORIDE
     Indication: DEPRESSION
     Dosage: 60 MG, QD
  2. PROBIOTICS [Concomitant]
     Active Substance: PROBIOTICS NOS
  3. LIOTHYRONINE [Concomitant]
     Active Substance: LIOTHYRONINE
  4. LEVOTHYROXINE. [Concomitant]
     Active Substance: LEVOTHYROXINE
  5. CHLOROTHIAZIDE. [Concomitant]
     Active Substance: CHLOROTHIAZIDE

REACTIONS (5)
  - Nausea [Not Recovered/Not Resolved]
  - Hypophagia [Unknown]
  - Diarrhoea [Not Recovered/Not Resolved]
  - Abdominal pain [Recovering/Resolving]
  - Vomiting [Not Recovered/Not Resolved]
